FAERS Safety Report 11945441 (Version 6)
Quarter: 2017Q1

REPORT INFORMATION
  Report Type: Report from Study
  Country: US (occurrence: US)
  Receive Date: 20160125
  Receipt Date: 20170221
  Transmission Date: 20170428
  Serious: Yes (Death, Other)
  Sender: FDA-Public Use
  Company Number: US-BAYER-2015-438013

PATIENT
  Age: 78 Year
  Sex: Male

DRUGS (2)
  1. NEXAVAR [Suspect]
     Active Substance: SORAFENIB
     Indication: RENAL CANCER
     Dosage: 200 MG, BID
     Route: 048
     Dates: start: 2015
  2. NEXAVAR [Suspect]
     Active Substance: SORAFENIB
     Indication: RENAL CANCER
     Dosage: 400 MG, BID
     Route: 048
     Dates: start: 20150924, end: 2015

REACTIONS (26)
  - Death [Fatal]
  - Muscle spasms [None]
  - Pain [None]
  - Pruritus [None]
  - Pain in extremity [None]
  - Proctalgia [None]
  - Haemorrhoids [Recovering/Resolving]
  - Skin fissures [None]
  - Acne [None]
  - Diarrhoea [None]
  - Skin irritation [None]
  - Rash [Not Recovered/Not Resolved]
  - Pruritus generalised [None]
  - Rash papular [Recovering/Resolving]
  - Fall [None]
  - Dyspnoea [Recovered/Resolved]
  - Skin disorder [None]
  - Headache [None]
  - Constipation [None]
  - Decreased appetite [None]
  - Pruritus [Recovering/Resolving]
  - Back pain [None]
  - Biopsy [None]
  - Limb injury [None]
  - Rash [None]
  - Tinnitus [None]

NARRATIVE: CASE EVENT DATE: 20150924
